FAERS Safety Report 24534997 (Version 1)
Quarter: 2024Q4

REPORT INFORMATION
  Report Type: Spontaneous
  Country: US (occurrence: US)
  Receive Date: 20241022
  Receipt Date: 20241022
  Transmission Date: 20250115
  Serious: No
  Sender: LUNDBECK
  Company Number: US-LUNDBECK-DKLU4005789

PATIENT

DRUGS (1)
  1. ONFI [Suspect]
     Active Substance: CLOBAZAM
     Indication: Epilepsy
     Dates: start: 2018

REACTIONS (1)
  - Product dose omission issue [Unknown]

NARRATIVE: CASE EVENT DATE: 20240801
